FAERS Safety Report 13746238 (Version 2)
Quarter: 2017Q3

REPORT INFORMATION
  Report Type: Spontaneous
  Country: US (occurrence: US)
  Receive Date: 20170712
  Receipt Date: 20170829
  Transmission Date: 20171127
  Serious: Yes (Other)
  Sender: FDA-Public Use
  Company Number: US-PFIZER INC-2017294238

PATIENT
  Age: 61 Year
  Sex: Female

DRUGS (1)
  1. METHOTREXATE SODIUM. [Suspect]
     Active Substance: METHOTREXATE SODIUM
     Dosage: 15 MG, WEEKLY

REACTIONS (28)
  - Dry mouth [Unknown]
  - Dyspepsia [Unknown]
  - Sleep disorder [Unknown]
  - Night sweats [Unknown]
  - Cough [Unknown]
  - Arthropathy [Unknown]
  - Back pain [Unknown]
  - Chills [Unknown]
  - Nausea [Unknown]
  - Constipation [Unknown]
  - Blue toe syndrome [Unknown]
  - Hypoaesthesia [Unknown]
  - Dysphonia [Unknown]
  - Irritability [Unknown]
  - Pain in extremity [Unknown]
  - Paraesthesia [Unknown]
  - Fatigue [Unknown]
  - Gingival pain [Unknown]
  - Arthralgia [Unknown]
  - Neck pain [Unknown]
  - Oropharyngeal pain [Unknown]
  - Myalgia [Unknown]
  - Muscular weakness [Unknown]
  - Hypertension [Unknown]
  - Musculoskeletal stiffness [Unknown]
  - Dry eye [Unknown]
  - Skin exfoliation [Unknown]
  - Dizziness [Unknown]
